FAERS Safety Report 19940240 (Version 1)
Quarter: 2021Q4

REPORT INFORMATION
  Report Type: Spontaneous
  Country: US (occurrence: US)
  Receive Date: 20211011
  Receipt Date: 20211011
  Transmission Date: 20220303
  Serious: No
  Sender: FDA-Public Use
  Company Number: US-SANOFI-00796266

PATIENT
  Age: 77 Year
  Sex: Female

DRUGS (4)
  1. ALLEGRA [Suspect]
     Active Substance: FEXOFENADINE HYDROCHLORIDE
     Indication: Dermatitis allergic
     Dosage: 60 MG, QD
  2. ALLEGRA [Suspect]
     Active Substance: FEXOFENADINE HYDROCHLORIDE
     Dosage: 120 MG, QD (IF NEEDED)
  3. ALLEGRA ALLERGY [Suspect]
     Active Substance: FEXOFENADINE HYDROCHLORIDE
     Indication: Hypersensitivity
     Dosage: UNK
  4. MAGNESIUM TAURATE [Concomitant]
     Dosage: UNK

REACTIONS (4)
  - Memory impairment [Unknown]
  - Visual impairment [Unknown]
  - Condition aggravated [Unknown]
  - Drug ineffective [Unknown]
